FAERS Safety Report 9477035 (Version 1)
Quarter: 2013Q3

REPORT INFORMATION
  Report Type: Spontaneous
  Country: US (occurrence: US)
  Receive Date: 20130826
  Receipt Date: 20130826
  Transmission Date: 20140515
  Serious: Yes (Other)
  Sender: FDA-Public Use
  Company Number: US-PFIZER INC-2013241086

PATIENT
  Age: 49 Year
  Sex: Male
  Weight: 84 kg

DRUGS (6)
  1. LIDOCAINE HCL [Suspect]
     Dosage: 1 %, UNK
  2. ATROPINE [Concomitant]
     Indication: PREMEDICATION
     Dosage: 0.4 MG, UNK
     Route: 030
  3. MEPERIDINE [Concomitant]
     Indication: PREMEDICATION
     Dosage: 50 MG, U NK
  4. THIOPENTAL [Concomitant]
     Indication: INDUCTION OF ANAESTHESIA
     Dosage: 500 MG, UNK
  5. PANCURONIUM [Concomitant]
     Indication: INDUCTION OF ANAESTHESIA
     Dosage: 10 MG, UNK
     Route: 042
  6. HALOTHANE [Concomitant]
     Indication: MAINTENANCE OF ANAESTHESIA
     Dosage: 0.5-1.0%, UNK

REACTIONS (5)
  - Neurotoxicity [Recovered/Resolved]
  - Electroencephalogram abnormal [Recovered/Resolved]
  - Heart rate decreased [Recovered/Resolved]
  - Sinus tachycardia [Recovered/Resolved]
  - Hypertension [Recovered/Resolved]
